FAERS Safety Report 15833357 (Version 1)
Quarter: 2018Q4

REPORT INFORMATION
  Report Type: Spontaneous
  Country: US (occurrence: US)
  Receive Date: 20181220
  Receipt Date: 20181220
  Transmission Date: 20190205
  Serious: No
  Sender: FDA-Public Use
  Company Number: None

PATIENT
  Age: 53 Year
  Sex: Female

DRUGS (1)
  1. FINGOLIMOD. [Suspect]
     Active Substance: FINGOLIMOD
     Route: 048
     Dates: start: 20181002, end: 20181029

REACTIONS (2)
  - Bradycardia [None]
  - Chest pain [None]

NARRATIVE: CASE EVENT DATE: 20181029
